FAERS Safety Report 10637698 (Version 1)
Quarter: 2014Q4

REPORT INFORMATION
  Report Type: Spontaneous
  Country: US (occurrence: None)
  Receive Date: 20141205
  Receipt Date: 20141205
  Transmission Date: 20150529
  Serious: No
  Sender: FDA-Public Use
  Company Number: None

PATIENT
  Age: 43 Year
  Sex: Female
  Weight: 92.08 kg

DRUGS (1)
  1. MIRENA [Suspect]
     Active Substance: LEVONORGESTREL

REACTIONS (5)
  - Headache [None]
  - Eructation [None]
  - Blood pressure increased [None]
  - Dyspepsia [None]
  - Blood pressure inadequately controlled [None]

NARRATIVE: CASE EVENT DATE: 20141029
